FAERS Safety Report 23290269 (Version 1)
Quarter: 2023Q4

REPORT INFORMATION
  Report Type: Spontaneous
  Country: JP (occurrence: JP)
  Receive Date: 20231213
  Receipt Date: 20231213
  Transmission Date: 20240110
  Serious: Yes (Hospitalization)
  Sender: FDA-Public Use
  Company Number: JP-USP-004853

PATIENT
  Age: 28 Year
  Sex: Female

DRUGS (4)
  1. NITROGLYCERIN [Suspect]
     Active Substance: NITROGLYCERIN
     Indication: Chest pain
     Route: 060
  2. MONTELUKAST SODIUM [Concomitant]
     Active Substance: MONTELUKAST SODIUM
     Indication: Asthma
     Route: 065
  3. CICLESONIDE [Concomitant]
     Active Substance: CICLESONIDE
     Indication: Asthma
     Route: 065
  4. NITROGLYCERIN [Suspect]
     Active Substance: NITROGLYCERIN
     Indication: Arteriospasm coronary
     Route: 022

REACTIONS (1)
  - Drug ineffective [Unknown]
